FAERS Safety Report 9128938 (Version 1)
Quarter: 2013Q1

REPORT INFORMATION
  Report Type: Spontaneous
  Country: US (occurrence: US)
  Receive Date: 20130125
  Receipt Date: 20130125
  Transmission Date: 20140127
  Serious: Yes (Other)
  Sender: FDA-Public Use
  Company Number: US-TEVA-382005USA

PATIENT
  Age: 21 None
  Sex: Female
  Weight: 63.56 kg

DRUGS (1)
  1. PARAGARD 380A [Suspect]
     Indication: CONTRACEPTION
     Route: 015
     Dates: start: 201208

REACTIONS (4)
  - Sepsis [Recovered/Resolved]
  - Tooth abscess [Not Recovered/Not Resolved]
  - Dysmenorrhoea [Recovered/Resolved]
  - Pelvic pain [Not Recovered/Not Resolved]
